FAERS Safety Report 4385423-1 (Version None)
Quarter: 2004Q2

REPORT INFORMATION
  Report Type: 
  Country: None (occurrence: None)
  Receive Date: 20040625
  Receipt Date: 20040625
  Transmission Date: 20050107
  Serious: Yes (Hospitalization)
  Sender: FDA-Public Use
  Company Number: None

PATIENT

DRUGS (1)
  1. EPLERENONE 25 MG PO [Suspect]
     Dosage: 25 MG PO QD
     Route: 048
     Dates: start: 20040401, end: 20040518

REACTIONS (7)
  - ASTHENIA [None]
  - DIZZINESS [None]
  - HYPOKALAEMIA [None]
  - HYPOMAGNESAEMIA [None]
  - HYPOTENSION [None]
  - NAUSEA [None]
  - VOMITING [None]
